FAERS Safety Report 7843894-X (Version None)
Quarter: 2011Q4

REPORT INFORMATION
  Report Type: 
  Country: None (occurrence: None)
  Receive Date: 20111025
  Receipt Date: 20111021
  Transmission Date: 20120403
  Serious: Yes (Hospitalization, Other)
  Sender: FDA-Public Use
  Company Number: US-VERTEX PHARMACEUTICALS INC.-AE-2011-001094

PATIENT
  Sex: Female
  Weight: 81.8 kg

DRUGS (11)
  1. INCIVEK [Suspect]
     Indication: HEPATITIS C
     Route: 048
     Dates: start: 20110811
  2. PROPRANOLOL [Concomitant]
  3. BUPROPION HCL [Concomitant]
     Indication: DEPRESSION
  4. PEG-INTRON [Concomitant]
     Indication: HEPATITIS C
     Route: 058
     Dates: start: 20110811
  5. ATIVAN [Concomitant]
     Indication: ANXIETY
     Route: 048
  6. SPIRIVA [Concomitant]
  7. CITALOPRAM HYDROBROMIDE [Concomitant]
     Indication: DEPRESSION
     Route: 048
  8. MIRTAZAPINE [Concomitant]
  9. ALBUTEROL [Concomitant]
  10. NAPROXEN [Concomitant]
  11. RIBAVIRIN [Concomitant]
     Indication: HEPATITIS C
     Route: 048
     Dates: start: 20110811

REACTIONS (6)
  - DYSPNOEA [None]
  - HYPOXIA [None]
  - CONFUSIONAL STATE [None]
  - ANAEMIA [None]
  - PNEUMONIA [None]
  - FATIGUE [None]
